FAERS Safety Report 6266387-2 (Version None)
Quarter: 2009Q3

REPORT INFORMATION
  Report Type: 
  Country: None (occurrence: None)
  Receive Date: 20090713
  Receipt Date: 20090629
  Transmission Date: 20100115
  Serious: Yes (Hospitalization)
  Sender: FDA-Public Use
  Company Number: US-JNJFOC-20090702382

PATIENT
  Age: 13 Year
  Sex: Female
  Weight: 55.5 kg

DRUGS (5)
  1. ACETAMINOPHEN [Suspect]
     Route: 048
  2. ACETAMINOPHEN [Suspect]
     Indication: DRUG USE FOR UNKNOWN INDICATION
     Dosage: 5000 - 12500 MG
     Route: 048
  3. ASPIRIN [Suspect]
  4. ASPIRIN [Suspect]
     Indication: DRUG USE FOR UNKNOWN INDICATION
  5. DIPHENHYDRAMINE HCL [Suspect]
     Indication: DRUG USE FOR UNKNOWN INDICATION

REACTIONS (1)
  - MULTIPLE DRUG OVERDOSE INTENTIONAL [None]
